FAERS Safety Report 11898133 (Version 1)
Quarter: 2016Q1

REPORT INFORMATION
  Report Type: Spontaneous
  Country: US (occurrence: US)
  Receive Date: 20160108
  Receipt Date: 20160108
  Transmission Date: 20160526
  Serious: No
  Sender: FDA-Public Use
  Company Number: US-BAYER-2016-003837

PATIENT
  Age: 91 Year
  Sex: Female

DRUGS (2)
  1. BAYER LOW DOSE [Suspect]
     Active Substance: ASPIRIN
     Dosage: UNK UNK, BID
  2. ALEVE [Suspect]
     Active Substance: NAPROXEN SODIUM
     Dosage: UNK

REACTIONS (4)
  - Product use issue [None]
  - Nausea [None]
  - Diarrhoea [None]
  - Off label use [None]

NARRATIVE: CASE EVENT DATE: 20160106
